FAERS Safety Report 7776067-X (Version None)
Quarter: 2011Q3

REPORT INFORMATION
  Report Type: 
  Country: None (occurrence: None)
  Receive Date: 20110925
  Receipt Date: 20110915
  Transmission Date: 20111222
  Serious: Yes (Other)
  Sender: FDA-Public Use
  Company Number: TR-ALLERGAN-1112451US

PATIENT
  Age: 37 Year
  Sex: Male

DRUGS (6)
  1. FLUOXETINE [Concomitant]
     Dosage: 20 MG, QD
  2. METHYLPREDNISOLONE [Concomitant]
     Indication: BEHCET'S SYNDROME
     Dosage: 16, 80 MG/DAY
  3. SERTRALINE HYDROCHLORIDE [Concomitant]
     Dosage: 50 MG, QD
  4. RISPERIDONE [Concomitant]
     Dosage: 50 MG, QD
  5. DEXAMETHASONE [Concomitant]
     Indication: UVEITIS
  6. CICLOPLEGICO EYE DROPS [Suspect]
     Indication: UVEITIS

REACTIONS (1)
  - DRUG DEPENDENCE [None]
